FAERS Safety Report 7345364-4 (Version None)
Quarter: 2011Q1

REPORT INFORMATION
  Report Type: 
  Country: None (occurrence: None)
  Receive Date: 20110310
  Receipt Date: 20110302
  Transmission Date: 20110831
  Serious: Yes (Hospitalization)
  Sender: FDA-Public Use
  Company Number: PHHO2010DE19653

PATIENT
  Age: 63 Year
  Sex: Male
  Weight: 64 kg

DRUGS (3)
  1. PREDNISONE [Concomitant]
     Indication: PROSTATE CANCER
     Dosage: 5 MG, QD
     Route: 048
     Dates: start: 20100429
  2. SUNITINIB MALATE [Concomitant]
     Indication: PROSTATE CANCER
     Dosage: 37.5 MG, QD
     Route: 048
     Dates: start: 20100429
  3. ZOMETA [Suspect]
     Dosage: UNK
     Dates: start: 20081001, end: 20100322

REACTIONS (2)
  - OSTEONECROSIS OF JAW [None]
  - SURGERY [None]
